FAERS Safety Report 8050099-9 (Version None)
Quarter: 2012Q1

REPORT INFORMATION
  Report Type: 
  Country: None (occurrence: None)
  Receive Date: 20120117
  Receipt Date: 20120109
  Transmission Date: 20120608
  Serious: Yes (Hospitalization)
  Sender: FDA-Public Use
  Company Number: US-BAYER-2011-038661

PATIENT
  Age: 24 Year
  Sex: Female
  Weight: 88.889 kg

DRUGS (4)
  1. YAZ [Suspect]
     Indication: CONTRACEPTION
     Dosage: UNK
     Dates: start: 20080401, end: 20080401
  2. MULTI-VITAMINS [Concomitant]
     Dosage: UNK UNK, QD (DAILY)
     Route: 048
  3. ASPIRIN [Concomitant]
     Dosage: 81 MG, UNK
     Route: 048
  4. PROGESTERONE [Concomitant]
     Dosage: 100 MG, UNK
     Route: 048

REACTIONS (2)
  - CHOLECYSTITIS CHRONIC [None]
  - GALLBLADDER DISORDER [None]
